FAERS Safety Report 17134753 (Version 2)
Quarter: 2019Q4

REPORT INFORMATION
  Report Type: Report from Study
  Country: DE (occurrence: DE)
  Receive Date: 20191210
  Receipt Date: 20191223
  Transmission Date: 20200122
  Serious: Yes (Other)
  Sender: FDA-Public Use
  Company Number: PHHY2016DE166330

PATIENT
  Age: 53 Year
  Sex: Male

DRUGS (1)
  1. GILENYA [Suspect]
     Active Substance: FINGOLIMOD HYDROCHLORIDE
     Indication: MULTIPLE SCLEROSIS
     Dosage: UNK, QD
     Route: 048
     Dates: start: 20140429

REACTIONS (12)
  - Tension [Unknown]
  - Visual acuity reduced [Unknown]
  - Alanine aminotransferase increased [Unknown]
  - Memory impairment [Unknown]
  - Lymphocyte count decreased [Not Recovered/Not Resolved]
  - White blood cell count decreased [Unknown]
  - Anxiety [Unknown]
  - Diarrhoea [Unknown]
  - Optic neuritis [Recovering/Resolving]
  - Nervousness [Unknown]
  - Gamma-glutamyltransferase increased [Unknown]
  - Restlessness [Unknown]

NARRATIVE: CASE EVENT DATE: 20150413
